FAERS Safety Report 16783909 (Version 1)
Quarter: 2019Q3

REPORT INFORMATION
  Report Type: Spontaneous
  Country: US (occurrence: US)
  Receive Date: 20190909
  Receipt Date: 20190909
  Transmission Date: 20191005
  Serious: No
  Sender: FDA-Public Use
  Company Number: US-STRIDES ARCOLAB LIMITED-2018SP008849

PATIENT

DRUGS (1)
  1. TACROLIMUS. [Suspect]
     Active Substance: TACROLIMUS
     Indication: RENAL TRANSPLANT
     Dosage: PATIENT TOOK UP TO 60 MG DAILY INSTEAD OF 6 MG ORALLY EVERY 12 HOURS
     Route: 048

REACTIONS (2)
  - Medication error [Unknown]
  - Drug level increased [Unknown]
